FAERS Safety Report 8970895 (Version 2)
Quarter: 2014Q2

REPORT INFORMATION
  Report Type: Spontaneous
  Country: FR (occurrence: FR)
  Receive Date: 20121218
  Receipt Date: 20131120
  Transmission Date: 20141212
  Serious: Yes (Life-Threatening)
  Sender: FDA-Public Use
  Company Number: FR-TEVA-375940ISR

PATIENT
  Age: 69 Year
  Sex: Female

DRUGS (4)
  1. CARBOPLATINE TEVA 10 MG/ML SOLUTION FOR INFUSION [Suspect]
     Indication: CERVIX CARCINOMA
     Route: 041
     Dates: start: 20121115, end: 20121115
  2. AVASTIN [Suspect]
     Indication: CERVIX CARCINOMA
     Route: 041
     Dates: start: 20121115, end: 20121115
  3. SOLUMEDROL [Concomitant]
  4. ZOPHREN [Concomitant]

REACTIONS (5)
  - Abdominal pain [Recovered/Resolved]
  - Dyspnoea [Recovered/Resolved]
  - Cyanosis [Recovered/Resolved]
  - Rash [Recovered/Resolved]
  - Pruritus [Recovered/Resolved]
